FAERS Safety Report 10785303 (Version 1)
Quarter: 2015Q1

REPORT INFORMATION
  Report Type: Spontaneous
  Country: US (occurrence: US)
  Receive Date: 20150211
  Receipt Date: 20150211
  Transmission Date: 20150721
  Serious: Yes (Hospitalization, Other)
  Sender: FDA-Public Use
  Company Number: PHHY2015US015169

PATIENT
  Age: 1 Year
  Sex: Female
  Weight: 8.9 kg

DRUGS (1)
  1. LAMOTRIGINE. [Suspect]
     Active Substance: LAMOTRIGINE
     Indication: PRODUCT USED FOR UNKNOWN INDICATION
     Route: 065

REACTIONS (10)
  - Hyperhidrosis [Unknown]
  - Drug administered to patient of inappropriate age [Unknown]
  - Clonus [Unknown]
  - Nausea [Unknown]
  - Myoclonus [Unknown]
  - Agitation [Unknown]
  - Hypotonia [Unknown]
  - Toxicity to various agents [Unknown]
  - Crying [Unknown]
  - Serotonin syndrome [Unknown]
